FAERS Safety Report 4380548-9 (Version None)
Quarter: 2004Q2

REPORT INFORMATION
  Report Type: 
  Country: None (occurrence: None)
  Receive Date: 20040614
  Receipt Date: 20040310
  Transmission Date: 20050107
  Serious: Yes (Hospitalization)
  Sender: FDA-Public Use
  Company Number: M04-341-073

PATIENT
  Age: 86 Year
  Sex: Male

DRUGS (9)
  1. VELCADE [Suspect]
     Indication: MULTIPLE MYELOMA
     Dosage: 1.3 MG/M2 : INTRAVENOUS BOLUS
     Route: 040
     Dates: start: 20040308, end: 20040308
  2. AMLODIPINE BESYLATE [Concomitant]
  3. FAMOTIDINE [Concomitant]
  4. IRON [Concomitant]
  5. METOPROLOL SUCCINATE [Concomitant]
  6. NITRO PATCH (GLYCERYL TRINITRATE); [Concomitant]
  7. PAMIDRONATE DISODIUM [Concomitant]
  8. PREVACID [Concomitant]
  9. SIMVASTATIN [Concomitant]

REACTIONS (2)
  - DYSPNOEA [None]
  - MYOCARDIAL INFARCTION [None]
